FAERS Safety Report 8070651-4 (Version None)
Quarter: 2012Q1

REPORT INFORMATION
  Report Type: 
  Country: None (occurrence: None)
  Receive Date: 20120125
  Receipt Date: 20120119
  Transmission Date: 20120608
  Serious: Yes (Other)
  Sender: FDA-Public Use
  Company Number: PHEH2012US001777

PATIENT

DRUGS (1)
  1. ZOMETA [Suspect]

REACTIONS (2)
  - TRAUMATIC FRACTURE [None]
  - ROAD TRAFFIC ACCIDENT [None]
